FAERS Safety Report 13940952 (Version 1)
Quarter: 2017Q3

REPORT INFORMATION
  Report Type: Spontaneous
  Country: US (occurrence: US)
  Receive Date: 20170906
  Receipt Date: 20170906
  Transmission Date: 20171127
  Serious: Yes (Other)
  Sender: FDA-Public Use
  Company Number: US-3M HEALTH CARE-USEN-AEMMWT

PATIENT

DRUGS (2)
  1. ANTIOBIOTICS [Concomitant]
     Active Substance: UNSPECIFIED INGREDIENT
     Dosage: UNK
     Dates: start: 20161011
  2. 3M SKIN AND NASAL ANTISEPTIC [Suspect]
     Active Substance: POVIDONE-IODINE
     Indication: PREOPERATIVE CARE
     Dosage: 4 ML MILLILITRE(S), SINGLE USE
     Route: 061
     Dates: start: 20161011

REACTIONS (1)
  - Hypotension [Unknown]

NARRATIVE: CASE EVENT DATE: 20161011
